FAERS Safety Report 16854406 (Version 5)
Quarter: 2024Q1

REPORT INFORMATION
  Report Type: Spontaneous
  Country: US (occurrence: US)
  Receive Date: 20190926
  Receipt Date: 20240108
  Transmission Date: 20240410
  Serious: Yes (Death, Hospitalization, Other)
  Sender: FDA-Public Use
  Company Number: US-GILEAD-2019-0429596

PATIENT
  Age: 30 Year
  Sex: Female
  Weight: 76.19 kg

DRUGS (55)
  1. TRUVADA [Suspect]
     Active Substance: EMTRICITABINE\TENOFOVIR DISOPROXIL FUMARATE
     Indication: HIV infection
     Dosage: UNK
     Route: 048
     Dates: start: 2013, end: 2017
  2. TRUVADA [Suspect]
     Active Substance: EMTRICITABINE\TENOFOVIR DISOPROXIL FUMARATE
     Dosage: UNK
     Route: 048
     Dates: start: 20110921, end: 20160222
  3. TRUVADA [Suspect]
     Active Substance: EMTRICITABINE\TENOFOVIR DISOPROXIL FUMARATE
     Dosage: UNK
     Route: 048
     Dates: start: 20110921, end: 201611
  4. DESCOVY [Concomitant]
     Active Substance: EMTRICITABINE\TENOFOVIR ALAFENAMIDE FUMARATE
  5. ISENTRESS [Concomitant]
     Active Substance: RALTEGRAVIR POTASSIUM
  6. NORVIR [Concomitant]
     Active Substance: RITONAVIR
  7. TIVICAY [Concomitant]
     Active Substance: DOLUTEGRAVIR SODIUM
  8. PREZISTA [Concomitant]
     Active Substance: DARUNAVIR ETHANOLATE
  9. PREZCOBIX [Concomitant]
     Active Substance: COBICISTAT\DARUNAVIR ETHANOLATE
  10. ACYCLOVIR [Concomitant]
     Active Substance: ACYCLOVIR
  11. AMOXICILLIN\CLAVULANIC ACID [Concomitant]
     Active Substance: AMOXICILLIN\CLAVULANIC ACID
  12. AMITRIPTYLINE [Concomitant]
     Active Substance: AMITRIPTYLINE
  13. NORVASC [Concomitant]
     Active Substance: AMLODIPINE BESYLATE
  14. ASPIRIN [Concomitant]
     Active Substance: ASPIRIN
  15. AZITHROMYCIN [Concomitant]
     Active Substance: AZITHROMYCIN
  16. CEPHALEXIN [Concomitant]
     Active Substance: CEPHALEXIN
  17. CALCIUM ACETATE [Concomitant]
     Active Substance: CALCIUM ACETATE
  18. ZYRTEC [Concomitant]
     Active Substance: CETIRIZINE HYDROCHLORIDE
  19. CIPROFLOXACIN [Concomitant]
     Active Substance: CIPROFLOXACIN
  20. ATOVAQUONE [Concomitant]
     Active Substance: ATOVAQUONE
  21. CLARITHROMYCIN [Concomitant]
     Active Substance: CLARITHROMYCIN
  22. CLINDAMYCIN [Concomitant]
     Active Substance: CLINDAMYCIN
  23. CREON [Concomitant]
     Active Substance: PANCRELIPASE AMYLASE\PANCRELIPASE LIPASE\PANCRELIPASE PROTEASE
  24. CYCLOBENZAPRINE [Concomitant]
     Active Substance: CYCLOBENZAPRINE
  25. DAPSONE [Concomitant]
     Active Substance: DAPSONE
  26. DUONEB [Concomitant]
     Active Substance: ALBUTEROL SULFATE\IPRATROPIUM BROMIDE
  27. ETHAMBUTOL HYDROCHLORIDE [Concomitant]
     Active Substance: ETHAMBUTOL HYDROCHLORIDE
  28. FAMOTIDINE [Concomitant]
     Active Substance: FAMOTIDINE
  29. FLAGYL [Concomitant]
     Active Substance: METRONIDAZOLE\METRONIDAZOLE HYDROCHLORIDE
  30. NEURONTIN [Concomitant]
     Active Substance: GABAPENTIN
  31. INDOMETHACIN [Concomitant]
     Active Substance: INDOMETHACIN
  32. KEPPRA [Concomitant]
     Active Substance: LEVETIRACETAM
  33. KETOROLAC [Concomitant]
     Active Substance: KETOROLAC TROMETHAMINE
  34. LINEZOLID [Concomitant]
     Active Substance: LINEZOLID
  35. LEVAQUIN [Concomitant]
     Active Substance: LEVOFLOXACIN
  36. LYRICA [Concomitant]
     Active Substance: PREGABALIN
  37. MELOXICAM [Concomitant]
     Active Substance: MELOXICAM
  38. METHYLPREDNISOLONE [Concomitant]
     Active Substance: METHYLPREDNISOLONE
  39. LEVONORGESTREL [Concomitant]
     Active Substance: LEVONORGESTREL
  40. NAPROXEN [Concomitant]
     Active Substance: NAPROXEN
  41. OXYCODONE AND ACETAMINOPHEN [Concomitant]
     Active Substance: ACETAMINOPHEN\OXYCODONE HYDROCHLORIDE
  42. PENICILLIN [Concomitant]
     Active Substance: PENICILLIN
  43. PROMETHAZINE [Concomitant]
     Active Substance: PROMETHAZINE HYDROCHLORIDE
  44. PREDNISONE [Concomitant]
     Active Substance: PREDNISONE
  45. RIFABUTIN [Concomitant]
     Active Substance: RIFABUTIN
  46. SENNA S [Concomitant]
     Active Substance: DOCUSATE SODIUM\SENNA LEAF
  47. VITAMIN B1 [Concomitant]
     Active Substance: THIAMINE HYDROCHLORIDE
  48. THERA-M [Concomitant]
  49. SULFAMETHOXAZOLE [Concomitant]
     Active Substance: SULFAMETHOXAZOLE
  50. TRAMADOL [Concomitant]
     Active Substance: TRAMADOL\TRAMADOL HYDROCHLORIDE
  51. ZOFRAN [Concomitant]
     Active Substance: ONDANSETRON HYDROCHLORIDE
  52. VITAMIN D2 [Concomitant]
     Active Substance: ERGOCALCIFEROL
  53. TRAZODONE [Concomitant]
     Active Substance: TRAZODONE HYDROCHLORIDE
  54. FLUCONAZOLE [Concomitant]
     Active Substance: FLUCONAZOLE
  55. VALTREX [Concomitant]
     Active Substance: VALACYCLOVIR HYDROCHLORIDE

REACTIONS (17)
  - Chronic kidney disease [Fatal]
  - Acute kidney injury [Recovered/Resolved]
  - Osteoporosis [Unknown]
  - Renal failure [Not Recovered/Not Resolved]
  - Loss of personal independence in daily activities [Not Recovered/Not Resolved]
  - Quality of life decreased [Not Recovered/Not Resolved]
  - Decreased activity [Not Recovered/Not Resolved]
  - Mobility decreased [Not Recovered/Not Resolved]
  - Fear [Not Recovered/Not Resolved]
  - Fatigue [Not Recovered/Not Resolved]
  - Impaired work ability [Not Recovered/Not Resolved]
  - Economic problem [Not Recovered/Not Resolved]
  - Anhedonia [Not Recovered/Not Resolved]
  - Emotional distress [Not Recovered/Not Resolved]
  - Anxiety [Not Recovered/Not Resolved]
  - Pain [Not Recovered/Not Resolved]
  - Depression [Not Recovered/Not Resolved]

NARRATIVE: CASE EVENT DATE: 20150101
